FAERS Safety Report 15559375 (Version 1)
Quarter: 2018Q4

REPORT INFORMATION
  Report Type: Spontaneous
  Country: US (occurrence: US)
  Receive Date: 20181029
  Receipt Date: 20181029
  Transmission Date: 20190205
  Serious: No
  Sender: FDA-Public Use
  Company Number: PHHY2018US138425

PATIENT
  Sex: Male

DRUGS (1)
  1. ENTRESTO [Suspect]
     Active Substance: SACUBITRIL\VALSARTAN
     Indication: LEFT VENTRICULAR FAILURE
     Dosage: 49 MG, BID
     Route: 048
     Dates: start: 20180505, end: 20180620

REACTIONS (2)
  - Lethargy [Recovering/Resolving]
  - Somnolence [Recovering/Resolving]
